FAERS Safety Report 5530478-1 (Version None)
Quarter: 2007Q4

REPORT INFORMATION
  Report Type: 
  Country: None (occurrence: None)
  Receive Date: 20071127
  Receipt Date: 20071114
  Transmission Date: 20080405
  Serious: Yes (Other)
  Sender: FDA-Public Use
  Company Number: GXKR2007IN09897

PATIENT

DRUGS (1)
  1. AMOXICILLIN, CLAVULANIC ACID, LACTOBACILLUS SPOROGENES (NGX)(AMOXICILL [Suspect]

REACTIONS (1)
  - HAEMATEMESIS [None]
